FAERS Safety Report 15534583 (Version 1)
Quarter: 2018Q4

REPORT INFORMATION
  Report Type: Spontaneous
  Country: US (occurrence: US)
  Receive Date: 20181022
  Receipt Date: 20181022
  Transmission Date: 20190205
  Serious: No
  Sender: FDA-Public Use
  Company Number: US-LUPIN PHARMACEUTICALS INC.-2018-00631

PATIENT
  Age: 17 Year
  Sex: Female

DRUGS (1)
  1. NIKKI [Suspect]
     Active Substance: DROSPIRENONE\ETHINYL ESTRADIOL
     Indication: CONTRACEPTION
     Dosage: 1 DF, QD (3 MG/0.02 MG)
     Route: 048
     Dates: start: 20170926, end: 20171128

REACTIONS (6)
  - Nausea [Recovered/Resolved]
  - Metrorrhagia [Recovered/Resolved]
  - Pollakiuria [Recovered/Resolved]
  - Headache [Recovered/Resolved]
  - Malaise [None]
  - Asthenia [Recovered/Resolved]

NARRATIVE: CASE EVENT DATE: 20170926
